FAERS Safety Report 17710134 (Version 1)
Quarter: 2020Q2

REPORT INFORMATION
  Report Type: Spontaneous
  Country: CN (occurrence: CN)
  Receive Date: 20200427
  Receipt Date: 20200427
  Transmission Date: 20200714
  Serious: Yes (Hospitalization)
  Sender: FDA-Public Use
  Company Number: CN-ELI_LILLY_AND_COMPANY-CN202004005390

PATIENT
  Age: 77 Year
  Sex: Female
  Weight: 55 kg

DRUGS (2)
  1. HUMULIN 70/30 [Suspect]
     Active Substance: INSULIN HUMAN
     Indication: DIABETES MELLITUS
     Dosage: 20 U, EACH MORNING
     Route: 058
     Dates: start: 2004
  2. HUMULIN 70/30 [Suspect]
     Active Substance: INSULIN HUMAN
     Dosage: 16-18 U, EACH MORNING
     Route: 058
     Dates: start: 2004

REACTIONS (7)
  - Fall [Unknown]
  - Limb injury [Recovered/Resolved]
  - Body height decreased [Unknown]
  - Limb injury [Recovered/Resolved]
  - Product dose omission [Unknown]
  - Hypoglycaemia [Recovered/Resolved]
  - Fall [Unknown]

NARRATIVE: CASE EVENT DATE: 2013
